FAERS Safety Report 25440085 (Version 1)
Quarter: 2025Q2

REPORT INFORMATION
  Report Type: Spontaneous
  Country: US (occurrence: None)
  Receive Date: 20250613
  Receipt Date: 20250613
  Transmission Date: 20250717
  Serious: Yes (Life-Threatening, Hospitalization, Other)
  Sender: FDA-CTU
  Company Number: None

PATIENT
  Age: 70 Year
  Sex: Male
  Weight: 76.95 kg

DRUGS (1)
  1. KISUNLA [Suspect]
     Active Substance: DONANEMAB-AZBT
     Indication: Anaphylactic reaction
     Route: 041
     Dates: start: 20250613, end: 20250613

REACTIONS (6)
  - Infusion related reaction [None]
  - Hyperaemia [None]
  - Flushing [None]
  - Hyperhidrosis [None]
  - Tachypnoea [None]
  - Hypoxia [None]

NARRATIVE: CASE EVENT DATE: 20250613
